FAERS Safety Report 20015725 (Version 1)
Quarter: 2021Q4

REPORT INFORMATION
  Report Type: Spontaneous
  Country: US (occurrence: None)
  Receive Date: 20211101
  Receipt Date: 20211101
  Transmission Date: 20220303
  Serious: No
  Sender: FDA-Public Use
  Company Number: None

PATIENT
  Age: 28 Year
  Sex: Female
  Weight: 58.5 kg

DRUGS (1)
  1. MONISTAT [Suspect]
     Active Substance: MICONAZOLE NITRATE
     Indication: Fungal infection
     Dates: start: 20211101, end: 20211101

REACTIONS (2)
  - Vulvovaginal burning sensation [None]
  - Vulvovaginal pain [None]

NARRATIVE: CASE EVENT DATE: 20211101
